FAERS Safety Report 5013271-8 (Version None)
Quarter: 2006Q2

REPORT INFORMATION
  Report Type: 
  Country: None (occurrence: None)
  Receive Date: 20060530
  Receipt Date: 20060404
  Transmission Date: 20061013
  Serious: Yes (Hospitalization)
  Sender: FDA-Public Use
  Company Number: US-GLAXOSMITHKLINE-A0600323A

PATIENT
  Age: 63 Year
  Sex: Male

DRUGS (5)
  1. WELLBUTRIN XL [Suspect]
     Dosage: 150MG PER DAY
     Route: 048
  2. CLONAZEPAM [Concomitant]
  3. ALPRAZOLAM [Concomitant]
  4. HYTRIN [Concomitant]
  5. CARDIZEM [Concomitant]

REACTIONS (2)
  - PALPITATIONS [None]
  - PHARMACEUTICAL PRODUCT COMPLAINT [None]
